FAERS Safety Report 9162017 (Version 2)
Quarter: 2013Q1

REPORT INFORMATION
  Report Type: Spontaneous
  Country: US (occurrence: None)
  Receive Date: 20130225
  Receipt Date: 20130329
  Transmission Date: 20140127
  Serious: Yes (Other)
  Sender: FDA-Public Use
  Company Number: 1302-229

PATIENT
  Age: 80 Year
  Sex: Female

DRUGS (7)
  1. EYLEA [Suspect]
     Indication: MACULAR DEGENERATION
     Dosage: 1.25 MG, 1 IN 1 M, INTRAVITREAL
     Route: 042
     Dates: start: 20120516, end: 20121218
  2. ASA (ACETYLSALICYLIC ACID) [Concomitant]
  3. TOPROL (METOPROLOL SUCCINATE) [Concomitant]
  4. NORVASC (AMLODIPINE BESILATE) [Concomitant]
  5. SINGULAIR (MONETELUKAST SODIUM) [Concomitant]
  6. VITAMIN D (ERGOCALCIFEROL) [Concomitant]
  7. FISH OIL (FISH OIL) [Concomitant]

REACTIONS (1)
  - Cerebrovascular accident [None]
